FAERS Safety Report 6104949-3 (Version None)
Quarter: 2009Q1

REPORT INFORMATION
  Report Type: 
  Country: None (occurrence: None)
  Receive Date: 20090304
  Receipt Date: 20090304
  Transmission Date: 20090719
  Serious: Yes (Hospitalization)
  Sender: FDA-Public Use
  Company Number: None

PATIENT
  Age: 83 Year
  Sex: Male

DRUGS (2)
  1. MORPHINE SULFATE [Suspect]
     Dosage: 30 MG OTHER PO
     Route: 048
     Dates: start: 20090212, end: 20090215
  2. LISINOPRIL [Suspect]
     Dosage: 10 MG EVERY DAY PO
     Route: 048
     Dates: end: 20090215

REACTIONS (3)
  - CONFUSIONAL STATE [None]
  - HYPOPHAGIA [None]
  - RENAL FAILURE ACUTE [None]
